FAERS Safety Report 23178839 (Version 1)
Quarter: 2023Q4

REPORT INFORMATION
  Report Type: Spontaneous
  Country: CN (occurrence: CN)
  Receive Date: 20231113
  Receipt Date: 20231113
  Transmission Date: 20240109
  Serious: Yes (Other)
  Sender: FDA-Public Use
  Company Number: CN-PFIZER INC-PV202300181949

PATIENT
  Age: 92 Year
  Sex: Male

DRUGS (1)
  1. ZYVOX [Suspect]
     Active Substance: LINEZOLID
     Indication: Anti-infective therapy
     Dosage: 600 MG, BID
     Route: 048
     Dates: start: 20231005, end: 20231014

REACTIONS (5)
  - Hypoglycaemic coma [Recovering/Resolving]
  - Hypoglycaemia [Recovered/Resolved]
  - Peripheral coldness [Recovering/Resolving]
  - Anal incontinence [Unknown]
  - Urinary incontinence [Unknown]

NARRATIVE: CASE EVENT DATE: 20231012
